FAERS Safety Report 10435898 (Version 1)
Quarter: 2014Q3

REPORT INFORMATION
  Report Type: Spontaneous
  Country: US (occurrence: None)
  Receive Date: 20140904
  Receipt Date: 20140904
  Transmission Date: 20150326
  Serious: Yes (Death)
  Sender: FDA-Public Use
  Company Number: IMP_07879_2014

PATIENT
  Age: 19 Year
  Sex: Male

DRUGS (1)
  1. METFORMIN [Suspect]
     Active Substance: METFORMIN HYDROCHLORIDE
     Indication: PRODUCT USED FOR UNKNOWN INDICATION
     Dosage: (240 DF 1X, [NOT THE PRESCRIBED DOSE] ORAL)
     Route: 048

REACTIONS (7)
  - Leukaemoid reaction [None]
  - Hypersensitivity [None]
  - Overdose [None]
  - Dialysis [None]
  - Bandaemia [None]
  - Haemodialysis [None]
  - Retching [None]
